FAERS Safety Report 7692226 (Version 10)
Quarter: 2013Q3

REPORT INFORMATION
  Report Type: Report from Study
  Country: US (occurrence: US)
  Receive Date: 20101205
  Receipt Date: 20130712
  Transmission Date: 20140515
  Serious: Yes (Hospitalization)
  Sender: FDA-Public Use
  Company Number: US-BRISTOL-MYERS SQUIBB COMPANY-15414493

PATIENT
  Age: 75 Year
  Sex: Female

DRUGS (8)
  1. SAXAGLIPTIN [Suspect]
     Indication: TYPE 2 DIABETES MELLITUS
     Dates: start: 20100813, end: 20130122
  2. METFORMIN HCL [Suspect]
     Indication: TYPE 2 DIABETES MELLITUS
     Dates: end: 20101030
  3. LEVEMIR [Suspect]
     Indication: TYPE 2 DIABETES MELLITUS
     Dosage: UNK-01FEB11,30IU?02FEB11-29JAN12,20IU?40IU 30JAN12-22JAN13
     Dates: end: 20130122
  4. NOVOLOG [Suspect]
     Indication: TYPE 2 DIABETES MELLITUS
     Dates: end: 20130122
  5. ASPIRIN [Concomitant]
  6. NITRATES [Concomitant]
  7. LASIX [Concomitant]
     Route: 042
     Dates: start: 20100930, end: 20100930
  8. AVELOX [Concomitant]
     Dates: start: 20100930, end: 20100930

REACTIONS (6)
  - Mental status changes [Recovered/Resolved]
  - Acute pulmonary oedema [Recovered/Resolved]
  - Delirium [Recovered/Resolved]
  - Cognitive disorder [Recovered/Resolved]
  - Bronchitis [Recovered/Resolved]
  - Mental impairment [Recovered/Resolved]
